FAERS Safety Report 7626188-7 (Version None)
Quarter: 2011Q3

REPORT INFORMATION
  Report Type: 
  Country: None (occurrence: None)
  Receive Date: 20110721
  Receipt Date: 20110711
  Transmission Date: 20111222
  Serious: Yes (Other)
  Sender: FDA-Public Use
  Company Number: PHHY2011US57542

PATIENT
  Sex: Female

DRUGS (4)
  1. VOLTAREN-XR [Suspect]
     Dosage: 100 MG, QD
  2. CLARITIN [Concomitant]
     Dosage: UNK UKN, UNK
  3. VOLTAREN [Suspect]
     Dosage: 75 MG, UNK
  4. SUDAFED 12 HOUR [Concomitant]
     Dosage: UNK UKN, UNK

REACTIONS (6)
  - DYSARTHRIA [None]
  - COLD-STIMULUS HEADACHE [None]
  - NERVOUS SYSTEM DISORDER [None]
  - ABDOMINAL DISCOMFORT [None]
  - GAIT DISTURBANCE [None]
  - CONSTIPATION [None]
